FAERS Safety Report 19833363 (Version 1)
Quarter: 2021Q3

REPORT INFORMATION
  Report Type: Spontaneous
  Country: US (occurrence: US)
  Receive Date: 20210915
  Receipt Date: 20210915
  Transmission Date: 20211014
  Serious: Yes (Other)
  Sender: FDA-Public Use
  Company Number: US-BAXTER-2021BAX028326

PATIENT
  Age: 2 Year
  Sex: Male

DRUGS (8)
  1. DOXIL [Suspect]
     Active Substance: DOXORUBICIN HYDROCHLORIDE
     Indication: PLEUROPULMONARY BLASTOMA
     Route: 065
  2. IFEX [Suspect]
     Active Substance: IFOSFAMIDE
     Indication: OVARIAN SERTOLI-LEYDIG CELL TUMOUR
     Route: 065
  3. IFEX [Suspect]
     Active Substance: IFOSFAMIDE
     Indication: PLEUROPULMONARY BLASTOMA
  4. VINCRISTINE [Suspect]
     Active Substance: VINCRISTINE
     Indication: OVARIAN SERTOLI-LEYDIG CELL TUMOUR
     Route: 065
  5. DACTINOMYCIN [Suspect]
     Active Substance: DACTINOMYCIN
     Indication: PLEUROPULMONARY BLASTOMA
  6. DACTINOMYCIN [Suspect]
     Active Substance: DACTINOMYCIN
     Indication: OVARIAN SERTOLI-LEYDIG CELL TUMOUR
     Route: 065
  7. DOXIL [Suspect]
     Active Substance: DOXORUBICIN HYDROCHLORIDE
     Indication: OVARIAN SERTOLI-LEYDIG CELL TUMOUR
  8. VINCRISTINE [Suspect]
     Active Substance: VINCRISTINE
     Indication: PLEUROPULMONARY BLASTOMA

REACTIONS (1)
  - Selective mutism [Unknown]
